FAERS Safety Report 8910727 (Version 1)
Quarter: 2012Q4

REPORT INFORMATION
  Report Type: Spontaneous
  Country: NL (occurrence: None)
  Receive Date: 20121107
  Receipt Date: 20121107
  Transmission Date: 20130627
  Serious: Yes (Hospitalization)
  Sender: FDA-Public Use
  Company Number: 2012AP003673

PATIENT

DRUGS (1)
  1. RANITIDINE [Suspect]

REACTIONS (2)
  - Urticaria [None]
  - Neonatal disorder [None]
